FAERS Safety Report 24218133 (Version 2)
Quarter: 2024Q3

REPORT INFORMATION
  Report Type: Spontaneous
  Country: US (occurrence: US)
  Receive Date: 20240816
  Receipt Date: 20240819
  Transmission Date: 20241017
  Serious: No
  Sender: PFIZER
  Company Number: US-PFIZER INC-202400236495

PATIENT
  Sex: Female
  Weight: 46.72 kg

DRUGS (1)
  1. TUKYSA [Suspect]
     Active Substance: TUCATINIB
     Dosage: UNK

REACTIONS (4)
  - Peripheral swelling [Unknown]
  - Skin disorder [Unknown]
  - Sciatica [Unknown]
  - Arthralgia [Unknown]
